FAERS Safety Report 21178755 (Version 4)
Quarter: 2023Q1

REPORT INFORMATION
  Report Type: Report from Study
  Country: CO (occurrence: CO)
  Receive Date: 20220805
  Receipt Date: 20230314
  Transmission Date: 20230417
  Serious: Yes (Hospitalization, Other)
  Sender: FDA-Public Use
  Company Number: CO-NOVARTISPH-NVSC2022CO177088

PATIENT
  Sex: Female

DRUGS (1)
  1. GILENYA [Suspect]
     Active Substance: FINGOLIMOD HYDROCHLORIDE
     Indication: Multiple sclerosis
     Dosage: 0.5 MG, QD (BY MOUTH)
     Route: 048

REACTIONS (12)
  - Migraine [Unknown]
  - Malaise [Unknown]
  - Vomiting [Unknown]
  - Headache [Unknown]
  - Blindness [Recovered/Resolved]
  - Multiple sclerosis relapse [Unknown]
  - Acne [Unknown]
  - Skin discolouration [Unknown]
  - Ill-defined disorder [Unknown]
  - Illness [Unknown]
  - Eye disorder [Unknown]
  - Headache [Recovered/Resolved]
